FAERS Safety Report 15231528 (Version 3)
Quarter: 2018Q3

REPORT INFORMATION
  Report Type: Report from Study
  Country: FR (occurrence: FR)
  Receive Date: 20180802
  Receipt Date: 20180917
  Transmission Date: 20181010
  Serious: Yes (Hospitalization)
  Sender: FDA-Public Use
  Company Number: FR-VIIV HEALTHCARE LIMITED-FR2018GSK137277

PATIENT
  Age: 49 Year
  Sex: Female

DRUGS (18)
  1. EPIVIR [Concomitant]
     Active Substance: LAMIVUDINE
     Indication: HIV INFECTION
  2. TELZIR [Concomitant]
     Active Substance: FOSAMPRENAVIR CALCIUM
  3. KIVEXA [Concomitant]
     Active Substance: ABACAVIR SULFATE\LAMIVUDINE
     Dosage: UNK
     Dates: start: 20110929
  4. INVIRASE [Concomitant]
     Active Substance: SAQUINAVIR MESYLATE
  5. EPIVIR [Concomitant]
     Active Substance: LAMIVUDINE
     Indication: HIV INFECTION
  6. RETROVIR [Concomitant]
     Active Substance: ZIDOVUDINE
  7. NORVIR [Concomitant]
     Active Substance: RITONAVIR
     Indication: HIV INFECTION
     Dosage: UNK
     Dates: start: 20110929
  8. VIDEX [Concomitant]
     Active Substance: DIDANOSINE
  9. ZERIT [Concomitant]
     Active Substance: STAVUDINE
  10. VIRAMUNE [Concomitant]
     Active Substance: NEVIRAPINE
  11. VIREAD [Concomitant]
     Active Substance: TENOFOVIR DISOPROXIL FUMARATE
  12. ISENTRESS [Concomitant]
     Active Substance: RALTEGRAVIR POTASSIUM
     Dosage: UNK
     Dates: start: 20110929
  13. DOLUTEGRAVIR [Suspect]
     Active Substance: DOLUTEGRAVIR
     Indication: HIV INFECTION
     Dosage: 50 MG, QD
     Dates: start: 20160421
  14. PREZISTA [Concomitant]
     Active Substance: DARUNAVIR ETHANOLATE
     Indication: HIV INFECTION
     Dosage: UNK
     Dates: start: 20110929
  15. ZIAGEN [Concomitant]
     Active Substance: ABACAVIR SULFATE
  16. CRIXIVAN [Concomitant]
     Active Substance: INDINAVIR SULFATE
  17. KALETRA [Concomitant]
     Active Substance: LOPINAVIR\RITONAVIR
  18. FUZEON [Concomitant]
     Active Substance: ENFUVIRTIDE

REACTIONS (2)
  - Uterine leiomyoma [Recovered/Resolved]
  - Anaemia [Recovered/Resolved]
